FAERS Safety Report 24907006 (Version 1)
Quarter: 2025Q1

REPORT INFORMATION
  Report Type: Spontaneous
  Country: US (occurrence: US)
  Receive Date: 20250130
  Receipt Date: 20250130
  Transmission Date: 20250409
  Serious: No
  Sender: SANOFI AVENTIS
  Company Number: US-SA-2025SA029594

PATIENT
  Age: 53 Year
  Sex: Female
  Weight: 100.91 kg

DRUGS (17)
  1. DUPIXENT [Suspect]
     Active Substance: DUPILUMAB
     Indication: Drug reaction with eosinophilia and systemic symptoms
     Dosage: 300 MG, QOW
     Route: 058
     Dates: start: 20240808
  2. DUPIXENT [Suspect]
     Active Substance: DUPILUMAB
     Indication: Dermatitis
  3. HYDROXYZINE HYDROCHLORIDE [Concomitant]
     Active Substance: HYDROXYZINE HYDROCHLORIDE
  4. INSULIN LISPRO [Concomitant]
     Active Substance: INSULIN LISPRO
  5. TRIAMCINOLONE ACETONIDE [Concomitant]
     Active Substance: TRIAMCINOLONE ACETONIDE
  6. HYDROCORTISONE [Concomitant]
     Active Substance: HYDROCORTISONE
  7. ALBUTEROL SULFATE [Concomitant]
     Active Substance: ALBUTEROL SULFATE
  8. DOXEPIN HYDROCHLORIDE [Concomitant]
     Active Substance: DOXEPIN HYDROCHLORIDE
  9. ISRADIPINE [Concomitant]
     Active Substance: ISRADIPINE
  10. ESTRADIOL [Concomitant]
     Active Substance: ESTRADIOL
  11. CIMETIDINE [Concomitant]
     Active Substance: CIMETIDINE
  12. MYCOPHENOLATE MOFETIL [Concomitant]
     Active Substance: MYCOPHENOLATE MOFETIL
  13. PREDNISONE [Concomitant]
     Active Substance: PREDNISONE
  14. MOUNJARO [Concomitant]
     Active Substance: TIRZEPATIDE
  15. ALLEGRA ALLERGY [Concomitant]
     Active Substance: FEXOFENADINE HYDROCHLORIDE
  16. CALCIUM CITRATE\VITAMIN D [Concomitant]
     Active Substance: CALCIUM CITRATE\VITAMIN D
  17. VITAMIN D3 [Concomitant]
     Active Substance: CHOLECALCIFEROL

REACTIONS (2)
  - Respiratory syncytial virus infection [Recovered/Resolved]
  - Product use in unapproved indication [Unknown]

NARRATIVE: CASE EVENT DATE: 20240808
